FAERS Safety Report 4909435-1 (Version None)
Quarter: 2006Q1

REPORT INFORMATION
  Report Type: 
  Country: None (occurrence: None)
  Receive Date: 20060209
  Receipt Date: 20060209
  Transmission Date: 20060701
  Serious: Yes (Life-Threatening, Other)
  Sender: FDA-Public Use
  Company Number: None

PATIENT
  Age: 48 Year
  Sex: Female
  Weight: 72.1 kg

DRUGS (7)
  1. HYDROCODONE/ACETAMINOPHEN 5/500 MALLINCROCK [Suspect]
     Indication: PROCEDURAL PAIN
     Dosage: 1 TO 2 TABLETS EVERY 4 HOURS PRN PO
     Route: 048
     Dates: start: 20050204, end: 20050204
  2. MORPHINE [Concomitant]
  3. DIAZEPAM [Concomitant]
  4. PROMETHAZINE [Concomitant]
  5. CEFAZOLIN [Concomitant]
  6. DOCUSATE CALCIUM [Concomitant]
  7. GABAPENTIN [Concomitant]

REACTIONS (6)
  - DRUG HYPERSENSITIVITY [None]
  - DYSPHAGIA [None]
  - DYSPNOEA [None]
  - OXYGEN SATURATION DECREASED [None]
  - RASH [None]
  - TYPE II HYPERSENSITIVITY [None]
